FAERS Safety Report 7632414-0 (Version None)
Quarter: 2011Q3

REPORT INFORMATION
  Report Type: 
  Country: None (occurrence: None)
  Receive Date: 20110725
  Receipt Date: 20100827
  Transmission Date: 20111222
  Serious: No
  Sender: FDA-Public Use
  Company Number: US-BRISTOL-MYERS SQUIBB COMPANY-15262835

PATIENT
  Age: 78 Year
  Sex: Female
  Weight: 67 kg

DRUGS (6)
  1. XANAX [Concomitant]
  2. AMIODARONE HCL [Concomitant]
  3. COUMADIN [Suspect]
     Dosage: 1DF= 5MG AND 2.5MG ON ALTERNATING DAYS, STARTED 2 YRS AGO.
  4. PROAIR HFA [Concomitant]
  5. LIPITOR [Concomitant]
  6. SYMBICORT [Concomitant]

REACTIONS (3)
  - SKIN ATROPHY [None]
  - NERVOUSNESS [None]
  - CONTUSION [None]
